FAERS Safety Report 5768523-0 (Version None)
Quarter: 2008Q2

REPORT INFORMATION
  Report Type: 
  Country: None (occurrence: None)
  Receive Date: 20080610
  Receipt Date: 20080529
  Transmission Date: 20081010
  Serious: Yes (Other)
  Sender: FDA-Public Use
  Company Number: PAR_02222_2008

PATIENT
  Age: 23 Year
  Sex: Female

DRUGS (1)
  1. IBUPROFEN [Suspect]
     Indication: ANALGESIA
     Dosage: 400 MG ORAL
     Route: 048
     Dates: start: 20080423, end: 20080423

REACTIONS (2)
  - ORAL DISCOMFORT [None]
  - PHARYNGOLARYNGEAL PAIN [None]
